FAERS Safety Report 7206862-7 (Version None)
Quarter: 2010Q4

REPORT INFORMATION
  Report Type: 
  Country: None (occurrence: None)
  Receive Date: 20101230
  Receipt Date: 20101230
  Transmission Date: 20110411
  Serious: Yes (Other)
  Sender: FDA-Public Use
  Company Number: None

PATIENT
  Age: 59 Year
  Sex: Female
  Weight: 87.0906 kg

DRUGS (1)
  1. PRADAXA [Suspect]
     Dosage: ONE CAPSULE TWICE DAILY PO
     Route: 048
     Dates: start: 20101211, end: 20101226

REACTIONS (9)
  - ABDOMINAL PAIN UPPER [None]
  - ASTHENIA [None]
  - COUGH [None]
  - DYSPEPSIA [None]
  - FATIGUE [None]
  - GASTROOESOPHAGEAL REFLUX DISEASE [None]
  - GENERAL PHYSICAL HEALTH DETERIORATION [None]
  - NO THERAPEUTIC RESPONSE [None]
  - RETCHING [None]
